FAERS Safety Report 6169515-2 (Version None)
Quarter: 2009Q2

REPORT INFORMATION
  Report Type: 
  Country: None (occurrence: None)
  Receive Date: 20090428
  Receipt Date: 20090422
  Transmission Date: 20091009
  Serious: Yes (Other)
  Sender: FDA-Public Use
  Company Number: US-ALLERGAN-0905600US

PATIENT
  Sex: Female

DRUGS (3)
  1. SANCTURA XR [Suspect]
     Indication: HYPERTONIC BLADDER
     Dosage: UNK, UNKNOWN
     Route: 048
     Dates: start: 20090107
  2. METHOTREXATE [Concomitant]
     Dosage: 2.5 MG, UNK
  3. AZOR [Concomitant]
     Dosage: 5 MG, UNK

REACTIONS (4)
  - BLOOD PRESSURE INCREASED [None]
  - LOCAL SWELLING [None]
  - OEDEMA PERIPHERAL [None]
  - SKIN ULCER [None]
